FAERS Safety Report 8366106-X (Version None)
Quarter: 2012Q2

REPORT INFORMATION
  Report Type: 
  Country: None (occurrence: None)
  Receive Date: 20120516
  Receipt Date: 20120516
  Transmission Date: 20120825
  Serious: Yes (Other)
  Sender: FDA-Public Use
  Company Number: None

PATIENT
  Age: 67 Year
  Sex: Female
  Weight: 113.3993 kg

DRUGS (1)
  1. MELOXICAM [Suspect]
     Indication: ARTHRITIS
     Dosage: 15 MG. 1 A DAY
     Dates: start: 20120417

REACTIONS (2)
  - BLADDER DISORDER [None]
  - GASTROINTESTINAL DISORDER [None]
